FAERS Safety Report 21421900 (Version 1)
Quarter: 2022Q4

REPORT INFORMATION
  Report Type: Spontaneous
  Country: GR (occurrence: GR)
  Receive Date: 20221007
  Receipt Date: 20221007
  Transmission Date: 20230112
  Serious: Yes (Hospitalization, Other)
  Sender: FDA-Public Use
  Company Number: GR-GILEAD-2022-0600530

PATIENT
  Age: 39 Year
  Sex: Male

DRUGS (9)
  1. ATRIPLA [Suspect]
     Active Substance: EFAVIRENZ\EMTRICITABINE\TENOFOVIR DISOPROXIL FUMARATE
     Indication: HIV infection
     Dosage: UNK
     Route: 065
  2. RIFAMPIN [Concomitant]
     Active Substance: RIFAMPIN
  3. ISONIAZID [Concomitant]
     Active Substance: ISONIAZID
  4. ETHAMBUTOL [Concomitant]
     Active Substance: ETHAMBUTOL HYDROCHLORIDE
  5. PYRAZINAMIDE [Concomitant]
     Active Substance: PYRAZINAMIDE
  6. METHYLPREDNISOLONE [Concomitant]
     Active Substance: METHYLPREDNISOLONE
  7. LEVOFLOXACIN [Concomitant]
     Active Substance: LEVOFLOXACIN
  8. GANCICLOVIR [Concomitant]
     Active Substance: GANCICLOVIR
  9. AMPHOTERICIN B [Concomitant]
     Active Substance: AMPHOTERICIN B

REACTIONS (2)
  - HIV wasting syndrome [Recovering/Resolving]
  - General physical health deterioration [Recovering/Resolving]
